FAERS Safety Report 7013644 (Version 2)
Quarter: 2014Q1

REPORT INFORMATION
  Report Type: Spontaneous
  Country: US (occurrence: None)
  Receive Date: 20090526
  Receipt Date: 20140204
  Transmission Date: 20141002
  Serious: Yes (Other)
  Sender: FDA-Public Use
  Company Number: 2009S1004141

PATIENT
  Age: 49 Year
  Sex: Male

DRUGS (8)
  1. FLEET PHOSPHO-SODA [Suspect]
     Indication: COLONOSCOPY
     Dosage: PO
     Route: 048
     Dates: start: 20070725
  2. FLEET PHOSPHO-SODA [Suspect]
     Indication: OESOPHAGOGASTRODUODENOSCOPY
     Dosage: PO
     Route: 048
     Dates: start: 20070725
  3. IBUPROFEN (IBUPROFEN) [Concomitant]
  4. VERAPAMIL (VERAPAMIL) [Concomitant]
  5. KLONOPIN (CLONAZEPAM) (TABLETS) [Concomitant]
  6. CELEXA (CELECOXIB) (15 MILLIGRAM) [Concomitant]
  7. PRILOSEC (OMEPRAZOLE) (20 MILLIGRAM) [Concomitant]
  8. BENICAR HCT (HYDROCHLOROTHIAZIDE, OLMESARTAN MEDOXOMIL) (TABLET) (HYDROCHLOROTHIAZIDE, OLMESARTAN MEDOXOMIL) [Concomitant]

REACTIONS (1)
  - Renal failure [None]
